FAERS Safety Report 24015738 (Version 1)
Quarter: 2024Q2

REPORT INFORMATION
  Report Type: Spontaneous
  Country: AT (occurrence: AT)
  Receive Date: 20240626
  Receipt Date: 20240626
  Transmission Date: 20240716
  Serious: Yes (Hospitalization, Other)
  Sender: FDA-Public Use
  Company Number: AT-ABBVIE-5808042

PATIENT
  Age: 46 Year
  Sex: Female

DRUGS (3)
  1. ADALIMUMAB [Suspect]
     Active Substance: ADALIMUMAB\ISOPROPYL ALCOHOL
     Indication: Colitis ulcerative
     Dosage: UNK
     Route: 058
  2. ASPIRIN [Concomitant]
     Active Substance: ASPIRIN
     Indication: Product used for unknown indication
     Dosage: 4 G, QD
     Route: 065
  3. USTEKINUMAB [Concomitant]
     Active Substance: USTEKINUMAB
     Indication: Product used for unknown indication
     Dosage: 90 MG (USTEKINUMAB EX)
     Route: 058

REACTIONS (7)
  - Colitis ulcerative [Recovering/Resolving]
  - Cholecystectomy [Unknown]
  - Diarrhoea haemorrhagic [Recovering/Resolving]
  - Hypothyroidism [Unknown]
  - Osteopenia [Unknown]
  - Defaecation urgency [Unknown]
  - Rectal tenesmus [Recovered/Resolved]

NARRATIVE: CASE EVENT DATE: 20190101
